FAERS Safety Report 10746685 (Version 1)
Quarter: 2015Q1

REPORT INFORMATION
  Report Type: Report from Study
  Country: FR (occurrence: FR)
  Receive Date: 20150128
  Receipt Date: 20150128
  Transmission Date: 20150721
  Serious: Yes (Death, Other)
  Sender: FDA-Public Use
  Company Number: FR-TEVA-537029USA

PATIENT

DRUGS (3)
  1. BENDAMUSTINE HYDROCHLORIDE [Suspect]
     Active Substance: BENDAMUSTINE HYDROCHLORIDE
     Indication: PLASMA CELL MYELOMA
     Route: 042
  2. BORTEZOMIB [Suspect]
     Active Substance: BORTEZOMIB
     Indication: PLASMA CELL MYELOMA
     Route: 042
  3. DEXAMETHASONE. [Suspect]
     Active Substance: DEXAMETHASONE
     Indication: PLASMA CELL MYELOMA
     Route: 048

REACTIONS (18)
  - Neutropenia [Unknown]
  - Syncope [Unknown]
  - Pancreatitis [Unknown]
  - Vomiting [Unknown]
  - Nausea [Unknown]
  - Cardiac failure [Unknown]
  - Hypersensitivity [Unknown]
  - Pulmonary fibrosis [Unknown]
  - Infection [Unknown]
  - Thrombocytopenia [Unknown]
  - Infection [Fatal]
  - Liver function test abnormal [Unknown]
  - Anaemia [Unknown]
  - Arrhythmia [Unknown]
  - Diarrhoea [Unknown]
  - Neuropathy peripheral [Unknown]
  - Thrombosis [Unknown]
  - Fatigue [Unknown]
